FAERS Safety Report 9135563 (Version 1)
Quarter: 2013Q1

REPORT INFORMATION
  Report Type: Spontaneous
  Country: GB (occurrence: None)
  Receive Date: 20130219
  Receipt Date: 20130219
  Transmission Date: 20140127
  Serious: Yes (Death)
  Sender: FDA-Public Use
  Company Number: 2013IMPI00068

PATIENT
  Age: 67 Year
  Sex: 0

DRUGS (2)
  1. BRENTUXIMAB VEDOTIN [Suspect]
     Indication: ANAPLASTIC LARGE-CELL LYMPHOMA
  2. BRENTUXIMAB VEDOTIN [Suspect]
     Indication: RECURRENT CANCER

REACTIONS (3)
  - Neutropenic sepsis [None]
  - Anaplastic large-cell lymphoma [None]
  - Malignant neoplasm progression [None]
